FAERS Safety Report 9431939 (Version 1)
Quarter: 2013Q3

REPORT INFORMATION
  Report Type: Spontaneous
  Country: FR (occurrence: FR)
  Receive Date: 20130731
  Receipt Date: 20130731
  Transmission Date: 20140515
  Serious: Yes (Hospitalization)
  Sender: FDA-Public Use
  Company Number: PHHY2013FR080758

PATIENT
  Age: 69 Year
  Sex: Female

DRUGS (3)
  1. GLIVEC [Suspect]
     Indication: CHRONIC MYELOID LEUKAEMIA
     Dosage: UNK UKN, UNK
     Route: 048
     Dates: start: 200604, end: 201212
  2. SPRYCEL//DASATINIB [Suspect]
     Indication: CHRONIC MYELOID LEUKAEMIA
     Dosage: 100 MG, QD
     Route: 048
  3. LEVOTHYROX [Suspect]
     Indication: HYPERTHYROIDISM
     Dosage: 62.5 UG, QD
     Route: 048

REACTIONS (1)
  - Peripheral ischaemia [Recovered/Resolved with Sequelae]
